FAERS Safety Report 8455684-8 (Version None)
Quarter: 2012Q2

REPORT INFORMATION
  Report Type: 
  Country: None (occurrence: None)
  Receive Date: 20120621
  Receipt Date: 20120614
  Transmission Date: 20120825
  Serious: Yes (Other)
  Sender: FDA-Public Use
  Company Number: US-BAYER-2012-060287

PATIENT
  Sex: Male

DRUGS (3)
  1. ALEVE (CAPLET) [Suspect]
  2. CELEBREX [Concomitant]
  3. CHEMOTHERAPEUTICS NOS [Concomitant]

REACTIONS (1)
  - ULCER [None]
